FAERS Safety Report 6026148-6 (Version None)
Quarter: 2008Q4

REPORT INFORMATION
  Report Type: 
  Country: None (occurrence: None)
  Receive Date: 20081230
  Receipt Date: 20081222
  Transmission Date: 20090506
  Serious: Yes (Death)
  Sender: FDA-Public Use
  Company Number: US025206

PATIENT
  Age: 28 Year
  Sex: Male

DRUGS (2)
  1. FENTORA [Suspect]
     Dosage: BUCCAL
     Route: 002
  2. ALPRAZOLAM [Suspect]

REACTIONS (2)
  - COMPLETED SUICIDE [None]
  - SELF-MEDICATION [None]
